FAERS Safety Report 5808557-0 (Version None)
Quarter: 2008Q3

REPORT INFORMATION
  Report Type: 
  Country: None (occurrence: None)
  Receive Date: 20080709
  Receipt Date: 20080709
  Transmission Date: 20090109
  Serious: No
  Sender: FDA-Public Use
  Company Number: None

PATIENT
  Age: 56 Year
  Sex: Male
  Weight: 88.9 kg

DRUGS (1)
  1. BEVACIZUMAB [Suspect]
     Indication: RECTAL CANCER
     Dosage: 775 MG OTHER IV
     Route: 042
     Dates: start: 20080508, end: 20080619

REACTIONS (3)
  - DRUG TOXICITY [None]
  - NEPHROTIC SYNDROME [None]
  - PHARYNGEAL OEDEMA [None]
